FAERS Safety Report 15745143 (Version 1)
Quarter: 2018Q4

REPORT INFORMATION
  Report Type: Spontaneous
  Country: US (occurrence: US)
  Receive Date: 20181220
  Receipt Date: 20181220
  Transmission Date: 20190205
  Serious: No
  Sender: FDA-Public Use
  Company Number: US-BAYER-2018-237172

PATIENT
  Sex: Female

DRUGS (1)
  1. STIVARGA [Suspect]
     Active Substance: REGORAFENIB
     Indication: COLON CANCER STAGE IV
     Dosage: UNK
     Dates: start: 2018

REACTIONS (5)
  - Neoplasm [None]
  - Gait disturbance [None]
  - Abdominal pain upper [None]
  - Pain [None]
  - Pain in extremity [None]
